FAERS Safety Report 6405266-4 (Version None)
Quarter: 2009Q4

REPORT INFORMATION
  Report Type: 
  Country: None (occurrence: None)
  Receive Date: 20091019
  Receipt Date: 20091014
  Transmission Date: 20100525
  Serious: Yes (Death, Other)
  Sender: FDA-Public Use
  Company Number: JP-ASTRAZENECA-2009SE12025

PATIENT
  Age: 58 Year
  Sex: Male
  Weight: 53 kg

DRUGS (11)
  1. IRESSA [Suspect]
     Indication: LUNG ADENOCARCINOMA
     Route: 048
     Dates: start: 20090612, end: 20090803
  2. NORVASC [Concomitant]
     Indication: HYPERTENSION
     Route: 048
     Dates: start: 20030101, end: 20090803
  3. RENIVACE [Concomitant]
     Indication: HYPERTENSION
     Route: 048
     Dates: start: 20030101, end: 20090803
  4. MAINTATE [Concomitant]
     Indication: HYPERTENSION
     Route: 048
     Dates: start: 20030101, end: 20090803
  5. LOXONIN [Concomitant]
     Indication: BONE CANCER METASTATIC
     Route: 048
     Dates: start: 20090508, end: 20090803
  6. MUCOSTA [Concomitant]
     Indication: GASTRITIS PROPHYLAXIS
     Route: 048
     Dates: start: 20090508, end: 20090803
  7. HUSCODE [Concomitant]
     Indication: MALIGNANT PLEURAL EFFUSION
     Route: 048
     Dates: start: 20090518, end: 20090627
  8. ZOSYN [Concomitant]
     Indication: ERYSIPELAS
     Route: 041
     Dates: start: 20090605, end: 20090617
  9. CODEINE PHOSPHATE [Concomitant]
     Indication: LUNG ADENOCARCINOMA
     Route: 048
     Dates: start: 20090627, end: 20090803
  10. NOVAMIN [Concomitant]
     Indication: PROPHYLAXIS OF NAUSEA AND VOMITING
     Route: 048
     Dates: start: 20090713, end: 20090803
  11. OXYCONTIN [Concomitant]
     Indication: BONE CANCER METASTATIC
     Route: 048
     Dates: start: 20090713, end: 20090804

REACTIONS (3)
  - DECREASED APPETITE [None]
  - HEPATIC FUNCTION ABNORMAL [None]
  - INTERSTITIAL LUNG DISEASE [None]
